FAERS Safety Report 14645616 (Version 1)
Quarter: 2018Q1

REPORT INFORMATION
  Report Type: Spontaneous
  Country: ES (occurrence: ES)
  Receive Date: 20180316
  Receipt Date: 20180316
  Transmission Date: 20180509
  Serious: Yes (Death)
  Sender: FDA-Public Use
  Company Number: ES-SUN PHARMACEUTICAL INDUSTRIES LTD-2018RR-166485

PATIENT
  Age: 56 Year
  Sex: Female

DRUGS (4)
  1. VOLTAREN [Suspect]
     Active Substance: DICLOFENAC SODIUM
     Indication: SUICIDE ATTEMPT
     Dosage: 750 MG, IN TOTAL
     Route: 048
     Dates: start: 20170313, end: 20170313
  2. BROMAZEPAM [Suspect]
     Active Substance: BROMAZEPAM
     Indication: SUICIDE ATTEMPT
     Dosage: 15 MG, IN TOTAL DESCONOCIDO
     Route: 048
     Dates: start: 20170313, end: 20170313
  3. CLORAZEPATO DIPOTASIO [Suspect]
     Active Substance: CLORAZEPATE DIPOTASSIUM
     Indication: SUICIDE ATTEMPT
     Dosage: 300 MG, IN TOTAL DESCONOCIDO
     Route: 048
     Dates: start: 20170313, end: 20170313
  4. PARACETAMOL [Suspect]
     Active Substance: ACETAMINOPHEN
     Indication: SUICIDE ATTEMPT
     Dosage: 3 G, IN TOTAL
     Route: 048
     Dates: start: 20170313, end: 20170313

REACTIONS (4)
  - Acute kidney injury [Fatal]
  - Multiple organ dysfunction syndrome [Fatal]
  - Acute hepatic failure [Fatal]
  - Hepatocellular injury [None]

NARRATIVE: CASE EVENT DATE: 20170314
